FAERS Safety Report 7821666-X (Version None)
Quarter: 2011Q4

REPORT INFORMATION
  Report Type: 
  Country: None (occurrence: None)
  Receive Date: 20111018
  Receipt Date: 20111012
  Transmission Date: 20120403
  Serious: Yes (Hospitalization, Other)
  Sender: FDA-Public Use
  Company Number: BE-ABBOTT-11P-013-0863944-00

PATIENT
  Age: 34 Year
  Sex: Female

DRUGS (1)
  1. PROGESTERONE [Suspect]
     Indication: LUTEAL PHASE DEFICIENCY
     Route: 067
     Dates: start: 20110401, end: 20110601

REACTIONS (5)
  - DRUG INEFFECTIVE [None]
  - ECLAMPSIA [None]
  - HEADACHE [None]
  - PREMATURE DELIVERY [None]
  - UTERINE HYPERTONUS [None]
